FAERS Safety Report 4361755-8 (Version None)
Quarter: 2004Q2

REPORT INFORMATION
  Report Type: 
  Country: None (occurrence: None)
  Receive Date: 20040521
  Receipt Date: 20040308
  Transmission Date: 20050107
  Serious: No
  Sender: FDA-Public Use
  Company Number: US-GLAXOSMITHKLINE-A0501615A

PATIENT
  Age: 69 Year
  Sex: Female

DRUGS (7)
  1. WELLBUTRIN XL [Suspect]
     Indication: DEPRESSION
     Dosage: 150MG PER DAY
     Route: 048
     Dates: start: 20040303
  2. WELLBUTRIN SR [Suspect]
     Indication: DEPRESSION
     Dosage: 150MG PER DAY
     Route: 048
     Dates: start: 20040308
  3. DIOVAN HCT [Concomitant]
  4. ALLEGRA [Concomitant]
  5. NASONEX [Concomitant]
  6. VIOXX [Concomitant]
  7. MULTIVITAMIN [Concomitant]

REACTIONS (2)
  - INSOMNIA [None]
  - MEDICATION ERROR [None]
